FAERS Safety Report 18825981 (Version 1)
Quarter: 2021Q1

REPORT INFORMATION
  Report Type: Spontaneous
  Country: US (occurrence: US)
  Receive Date: 20210201
  Receipt Date: 20210201
  Transmission Date: 20210419
  Serious: No
  Sender: FDA-Public Use
  Company Number: US-ABBVIE-20K-163-3394969-00

PATIENT
  Age: 36 Year
  Sex: Female
  Weight: 103.06 kg

DRUGS (4)
  1. VENTO [Concomitant]
     Indication: ABDOMINAL PAIN UPPER
  2. HUMIRA [Suspect]
     Active Substance: ADALIMUMAB
     Indication: COLITIS ULCERATIVE
     Route: 058
     Dates: start: 201912
  3. VENTO [Concomitant]
     Indication: DIARRHOEA
  4. MESALAMINE. [Concomitant]
     Active Substance: MESALAMINE
     Indication: GASTRIC DISORDER

REACTIONS (5)
  - Papule [Not Recovered/Not Resolved]
  - Injection site haemorrhage [Unknown]
  - Device issue [Unknown]
  - Oropharyngeal pain [Unknown]
  - Injection site pain [Unknown]

NARRATIVE: CASE EVENT DATE: 20200506
